FAERS Safety Report 8222530-7 (Version None)
Quarter: 2012Q1

REPORT INFORMATION
  Report Type: 
  Country: None (occurrence: None)
  Receive Date: 20120320
  Receipt Date: 20120313
  Transmission Date: 20120608
  Serious: Yes (Other)
  Sender: FDA-Public Use
  Company Number: BR-PFIZER INC-2012066278

PATIENT
  Age: 60 Year
  Sex: Male

DRUGS (4)
  1. CAPTOPRIL [Concomitant]
     Dosage: UNK
     Dates: start: 20070101
  2. XALATAN [Suspect]
     Dosage: UNK
     Route: 047
     Dates: start: 20110901
  3. METFORMIN [Concomitant]
     Dosage: UNK
     Dates: start: 20070101
  4. GLUCOVANCE [Concomitant]
     Dosage: UNK
     Dates: start: 20070101

REACTIONS (1)
  - INTRAOCULAR PRESSURE INCREASED [None]
